FAERS Safety Report 10310931 (Version 2)
Quarter: 2014Q3

REPORT INFORMATION
  Report Type: Report from Study
  Country: FR (occurrence: FR)
  Receive Date: 20140717
  Receipt Date: 20140806
  Transmission Date: 20150326
  Serious: Yes (Death, Hospitalization)
  Sender: FDA-Public Use
  Company Number: FR-TEVA-418096ISR

PATIENT
  Age: 66 Year
  Sex: Male

DRUGS (1)
  1. EFFENTORA [Suspect]
     Active Substance: FENTANYL CITRATE
     Indication: PRODUCT USED FOR UNKNOWN INDICATION
     Route: 002
     Dates: end: 201306

REACTIONS (3)
  - Vomiting [Unknown]
  - Nausea [Unknown]
  - Recurrent cancer [Fatal]

NARRATIVE: CASE EVENT DATE: 201306
